FAERS Safety Report 9099320 (Version 1)
Quarter: 2013Q1

REPORT INFORMATION
  Report Type: Spontaneous
  Country: NL (occurrence: NL)
  Receive Date: 20130213
  Receipt Date: 20130213
  Transmission Date: 20140127
  Serious: Yes (Other)
  Sender: FDA-Public Use
  Company Number: NL-ELI_LILLY_AND_COMPANY-NL201302001363

PATIENT
  Age: 77 Year
  Sex: Female

DRUGS (8)
  1. PRASUGREL HYDROCHLORIDE [Suspect]
     Indication: ACUTE MYOCARDIAL INFARCTION
     Dosage: 60 MG, LOADING DOSE
     Route: 048
     Dates: start: 20130123
  2. ANGIOX [Concomitant]
     Indication: ACUTE MYOCARDIAL INFARCTION
     Dosage: LOADING DOSE
     Dates: start: 20130123
  3. PROPRANOLOL [Concomitant]
     Dosage: 10 MG, QD
  4. SALBUTAMOL [Concomitant]
  5. COLECALCIFEROL [Concomitant]
  6. FENTANYL [Concomitant]
  7. OMEPRAZOL [Concomitant]
  8. CARBASALATE CALCIUM [Concomitant]
     Dosage: 38 MG, QD

REACTIONS (4)
  - Cardiac failure [Unknown]
  - Pneumonia [Unknown]
  - Dyspnoea [Unknown]
  - Puncture site haemorrhage [Recovered/Resolved]
